FAERS Safety Report 11447711 (Version 4)
Quarter: 2015Q4

REPORT INFORMATION
  Report Type: Report from Study
  Country: JP (occurrence: JP)
  Receive Date: 20150902
  Receipt Date: 20151020
  Transmission Date: 20160304
  Serious: Yes (Death, Hospitalization, Other)
  Sender: FDA-Public Use
  Company Number: JP-BAYER-2015-378691

PATIENT
  Age: 73 Year
  Sex: Male
  Weight: 80 kg

DRUGS (10)
  1. RINDERON V [Concomitant]
     Active Substance: BETAMETHASONE VALERATE
     Indication: ECZEMA NUMMULAR
     Dosage: UNK
     Route: 061
     Dates: start: 20150723, end: 20150727
  2. SORAFENIB (RAF KINASE INHIBITOR) [Suspect]
     Active Substance: SORAFENIB
     Indication: HEPATOCELLULAR CARCINOMA
     Dosage: 800 MG, BID
     Route: 048
     Dates: start: 20150618, end: 20150702
  3. PASTARON [Concomitant]
     Active Substance: UREA
     Indication: DRUG TOXICITY PROPHYLAXIS
     Dosage: UNK
     Route: 061
     Dates: end: 20150813
  4. RESMINOSTAT [Suspect]
     Active Substance: RESMINOSTAT
     Indication: HEPATOCELLULAR CARCINOMA
     Dosage: 400 MG, QD
     Route: 048
     Dates: start: 20150703, end: 20150707
  5. NEXIUM [Concomitant]
     Active Substance: ESOMEPRAZOLE MAGNESIUM
     Indication: GASTROOESOPHAGEAL REFLUX DISEASE
     Dosage: 20 MG, QD
     Route: 048
     Dates: end: 20150820
  6. CARBAZOCHROME SODIUM SULFONATE [Concomitant]
     Active Substance: CARBAZOCHROME SODIUM SULFONATE
     Indication: RETINAL HAEMORRHAGE
     Dosage: 30 MG, TID
     Route: 048
     Dates: end: 20150819
  7. SORAFENIB (RAF KINASE INHIBITOR) [Suspect]
     Active Substance: SORAFENIB
     Indication: HEPATOCELLULAR CARCINOMA
     Dosage: 800 MG, BID
     Route: 048
     Dates: start: 20150703, end: 20150709
  8. SORAFENIB (RAF KINASE INHIBITOR) [Suspect]
     Active Substance: SORAFENIB
     Indication: HEPATOCELLULAR CARCINOMA
     Dosage: 800 MG, BID
     Route: 048
     Dates: start: 20150715, end: 20150727
  9. RESMINOSTAT [Suspect]
     Active Substance: RESMINOSTAT
     Indication: HEPATOCELLULAR CARCINOMA
     Dosage: 400 MG, QD
     Route: 048
     Dates: start: 20150618, end: 20150622
  10. NIFEDIPINE. [Concomitant]
     Active Substance: NIFEDIPINE
     Indication: HYPERTENSION
     Dosage: 10 MG, BID
     Route: 048
     Dates: end: 20150819

REACTIONS (11)
  - Hepatic encephalopathy [Not Recovered/Not Resolved]
  - Decreased appetite [None]
  - Hepatic failure [Not Recovered/Not Resolved]
  - Cholecystitis [Recovered/Resolved]
  - Hepatocellular carcinoma [Fatal]
  - Hyperbilirubinaemia [Recovering/Resolving]
  - Ascites [Not Recovered/Not Resolved]
  - Decreased appetite [Recovering/Resolving]
  - Malaise [None]
  - Abdominal distension [None]
  - Dyspnoea [Recovered/Resolved]

NARRATIVE: CASE EVENT DATE: 20150709
